FAERS Safety Report 10390084 (Version 1)
Quarter: 2014Q3

REPORT INFORMATION
  Report Type: Spontaneous
  Country: CA (occurrence: CA)
  Receive Date: 20140818
  Receipt Date: 20140818
  Transmission Date: 20150326
  Serious: Yes (Hospitalization, Other)
  Sender: FDA-Public Use
  Company Number: CA-NOVOPROD-418967

PATIENT
  Sex: Female

DRUGS (4)
  1. LEVEMIR PENFILL [Suspect]
     Active Substance: INSULIN DETEMIR
     Indication: PRODUCT USED FOR UNKNOWN INDICATION
     Dosage: 10 U
     Route: 065
  2. LEVEMIR PENFILL [Suspect]
     Active Substance: INSULIN DETEMIR
     Dosage: INCREASED THE DOSE BY 1 UNIT
     Route: 065
  3. METFORMIN [Concomitant]
     Active Substance: METFORMIN HYDROCHLORIDE
     Dosage: UNK
  4. GLICLAZIDE [Concomitant]
     Active Substance: GLICLAZIDE
     Dosage: UNK
     Dates: start: 20140731

REACTIONS (2)
  - Lymph node abscess [Unknown]
  - Peritonsillar abscess [Unknown]
